FAERS Safety Report 5914801-1 (Version None)
Quarter: 2008Q4

REPORT INFORMATION
  Report Type: 
  Country: None (occurrence: None)
  Receive Date: 20081010
  Receipt Date: 20080930
  Transmission Date: 20090506
  Serious: Yes (Other)
  Sender: FDA-Public Use
  Company Number: US-ROCHE-588938

PATIENT
  Sex: Female
  Weight: 54.4 kg

DRUGS (8)
  1. CAPECITABINE [Suspect]
     Indication: BREAST CANCER
     Dosage: TAKEN 1000 MG IN A.M. AND 1000 MG IN P.M.
     Route: 048
     Dates: start: 20080107, end: 20080818
  2. TAXOL [Concomitant]
  3. ZOMETA [Concomitant]
  4. ALEVE [Concomitant]
  5. LASIX [Concomitant]
  6. MORPHINE [Concomitant]
  7. NEXIUM [Concomitant]
  8. POTASSIUM CHLORIDE [Concomitant]

REACTIONS (1)
  - METASTASIS [None]
